FAERS Safety Report 22141873 (Version 1)
Quarter: 2023Q1

REPORT INFORMATION
  Report Type: Spontaneous
  Country: ET (occurrence: ET)
  Receive Date: 20230327
  Receipt Date: 20230327
  Transmission Date: 20230417
  Serious: Yes (Other)
  Sender: FDA-Public Use
  Company Number: ET-STERISCIENCE B.V.-2023-ST-001056

PATIENT
  Sex: Male
  Weight: .8 kg

DRUGS (6)
  1. BUPIVACAINE [Suspect]
     Active Substance: BUPIVACAINE
     Indication: Product used for unknown indication
     Dosage: PATIENT MOTHER DOSE WAS 7.5 MG OF 0.5% ISOBARIC BUPIVACAINE
     Route: 064
  2. NIFEDIPINE [Suspect]
     Active Substance: NIFEDIPINE
     Indication: Product used for unknown indication
     Dosage: PATIENT MOTHER DOSE WAS 40 MILLIGRAM, 0.5 DAY
     Route: 064
  3. METOCLOPRAMIDE [Suspect]
     Active Substance: METOCLOPRAMIDE
     Indication: Product used for unknown indication
     Dosage: PATIENT MOTHER DOSE WAS 10 MILLIGRAM
     Route: 064
  4. DEXAMETHASONE [Suspect]
     Active Substance: DEXAMETHASONE
     Indication: Product used for unknown indication
     Dosage: PATIENT MOTHER DOSE WAS 8 MILLIGRAM
     Route: 064
  5. LIDOCAINE [Suspect]
     Active Substance: LIDOCAINE
     Indication: Product used for unknown indication
     Dosage: PATIENT MOTHER DOSE WAS 3ML, 60MG; WAS INJECTED ONE STEP UP (AT L3) FOR SKIN INFILTRATION
     Route: 064
  6. DEXMEDETOMIDINE [Suspect]
     Active Substance: DEXMEDETOMIDINE
     Indication: Product used for unknown indication
     Dosage: PATIENT MOTHER DOSE WAS 8 MICROGRAM
     Route: 064

REACTIONS (4)
  - Premature baby [Unknown]
  - Low birth weight baby [Unknown]
  - Adverse event [Unknown]
  - Foetal exposure during pregnancy [Unknown]
